FAERS Safety Report 13819212 (Version 1)
Quarter: 2017Q3

REPORT INFORMATION
  Report Type: Spontaneous
  Country: US (occurrence: US)
  Receive Date: 20170801
  Receipt Date: 20170801
  Transmission Date: 20171127
  Serious: Yes (Other)
  Sender: FDA-Public Use
  Company Number: US-TEVA-792589USA

PATIENT
  Age: 42 Year
  Sex: Male

DRUGS (2)
  1. ESTRADIOL. [Suspect]
     Active Substance: ESTRADIOL
     Dosage: 6 MG/1 WEEK, INCONSISTENTLY
     Route: 065
     Dates: start: 2011
  2. MEDROXYPROGESTERONE [Suspect]
     Active Substance: MEDROXYPROGESTERONE
     Dosage: 10 MG/1 D
     Route: 065

REACTIONS (3)
  - Myocardial infarction [Unknown]
  - Arterial thrombosis [Unknown]
  - Product use issue [Unknown]

NARRATIVE: CASE EVENT DATE: 2011
